FAERS Safety Report 26048639 (Version 1)
Quarter: 2025Q4

REPORT INFORMATION
  Report Type: Report from Study
  Country: CA (occurrence: CA)
  Receive Date: 20251114
  Receipt Date: 20251114
  Transmission Date: 20260117
  Serious: Yes (Other)
  Sender: ABBVIE
  Company Number: CA-ABBVIE-6544469

PATIENT
  Sex: Male

DRUGS (1)
  1. SKYRIZI [Suspect]
     Active Substance: RISANKIZUMAB-RZAA
     Indication: Crohn^s disease
     Dosage: SOLUTION FOR INJECTION IN CARTRIDGE
     Route: 058

REACTIONS (10)
  - Liver transplant [Unknown]
  - Crohn^s disease [Unknown]
  - Vitamin D deficiency [Unknown]
  - Pancreatitis chronic [Unknown]
  - Pancreatolithiasis [Unknown]
  - Blood calcium abnormal [Recovering/Resolving]
  - Vitamin A deficiency [Unknown]
  - Portal vein thrombosis [Unknown]
  - Skin lesion [Recovered/Resolved]
  - Drug ineffective [Unknown]
